FAERS Safety Report 4514669-4 (Version None)
Quarter: 2004Q4

REPORT INFORMATION
  Report Type: 
  Country: None (occurrence: None)
  Receive Date: 20041126
  Receipt Date: 20041116
  Transmission Date: 20050328
  Serious: Yes (Other)
  Sender: FDA-Public Use
  Company Number: 2004IM000933

PATIENT
  Age: 64 Year
  Sex: Female

DRUGS (1)
  1. ADVAFERON (A643_INTERFERON ALFACON-1) [Suspect]
     Indication: HEPATITIS C
     Dosage: 18 MU QD SUBCUTANEOUS
     Route: 058
     Dates: start: 20040519, end: 20041101

REACTIONS (2)
  - DIVERTICULUM INTESTINAL [None]
  - RECTAL CANCER [None]
